FAERS Safety Report 4558248-1 (Version None)
Quarter: 2005Q1

REPORT INFORMATION
  Report Type: 
  Country: None (occurrence: None)
  Receive Date: 20050121
  Receipt Date: 20050113
  Transmission Date: 20050727
  Serious: Yes (Other)
  Sender: FDA-Public Use
  Company Number: US-BRISTOL-MYERS SQUIBB COMPANY-12825113

PATIENT
  Sex: Female

DRUGS (6)
  1. ESTRACE [Suspect]
     Indication: HORMONE REPLACEMENT THERAPY
  2. PREMPRO [Suspect]
     Indication: HORMONE REPLACEMENT THERAPY
  3. PREMARIN [Suspect]
     Indication: HORMONE REPLACEMENT THERAPY
  4. PROVERA [Suspect]
     Indication: HORMONE REPLACEMENT THERAPY
  5. ESTROGEN [Suspect]
     Indication: HORMONE REPLACEMENT THERAPY
  6. MEDROXYPROGESTERONE ACETATE [Suspect]
     Indication: HORMONE REPLACEMENT THERAPY

REACTIONS (1)
  - BREAST CANCER [None]
